FAERS Safety Report 8125568-3 (Version None)
Quarter: 2012Q1

REPORT INFORMATION
  Report Type: 
  Country: None (occurrence: None)
  Receive Date: 20120209
  Receipt Date: 20120203
  Transmission Date: 20120608
  Serious: Yes (Other)
  Sender: FDA-Public Use
  Company Number: US-PFIZER INC-2011282790

PATIENT
  Sex: Male

DRUGS (3)
  1. CHANTIX [Suspect]
     Indication: SMOKING CESSATION THERAPY
     Dosage: STARTER PACK AND CONTINUING PACKS
     Dates: start: 20070501, end: 20080101
  2. MIRTAZAPINE [Concomitant]
     Indication: HYPERTENSION
     Dosage: 30 MG, UNK
     Dates: start: 20070618, end: 20090301
  3. AMBIEN [Concomitant]
     Dosage: 12 MG, UNK
     Dates: start: 20070618, end: 20081201

REACTIONS (7)
  - AGGRESSION [None]
  - INTENTIONAL OVERDOSE [None]
  - ABNORMAL BEHAVIOUR [None]
  - SUICIDE ATTEMPT [None]
  - SUICIDAL IDEATION [None]
  - DEPRESSION [None]
  - MOOD ALTERED [None]
